FAERS Safety Report 4845970-2 (Version None)
Quarter: 2005Q4

REPORT INFORMATION
  Report Type: 
  Country: None (occurrence: None)
  Receive Date: 20051201
  Receipt Date: 20030417
  Transmission Date: 20060501
  Serious: Yes (Other)
  Sender: FDA-Public Use
  Company Number: 000524

PATIENT
  Sex: 0

DRUGS (3)
  1. ZEVALIN [Suspect]
     Indication: NON-HODGKIN'S LYMPHOMA
     Dosage: .4 MCI/KG/1X;IV
     Route: 042
     Dates: start: 20030220, end: 20030220
  2. ZEVALIN [Suspect]
     Indication: NON-HODGKIN'S LYMPHOMA
     Dosage: .4 MCI/KG/1X;IV
     Route: 042
     Dates: start: 20030220, end: 20030220
  3. RITUXIMAB [Concomitant]

REACTIONS (4)
  - ANAEMIA [None]
  - LEUKOPENIA [None]
  - NEUTROPENIA [None]
  - THROMBOCYTOPENIA [None]
